FAERS Safety Report 6098693-9 (Version None)
Quarter: 2009Q1

REPORT INFORMATION
  Report Type: 
  Country: None (occurrence: None)
  Receive Date: 20090302
  Receipt Date: 20090220
  Transmission Date: 20090719
  Serious: Yes (Other)
  Sender: FDA-Public Use
  Company Number: LU-ABBOTT-08P-013-0483232-00

PATIENT
  Age: 68 Year
  Sex: Female
  Weight: 67.2 kg

DRUGS (5)
  1. HUMIRA [Suspect]
     Indication: RHEUMATOID ARTHRITIS
     Dates: start: 20050101, end: 20080717
  2. HUMIRA [Suspect]
     Dates: start: 20040305, end: 20050101
  3. METHOTREXATE [Concomitant]
     Indication: RHEUMATOID ARTHRITIS
     Dosage: 7.5MG OR 2.5 MG WEEKLY
     Dates: start: 20080101, end: 20080801
  4. SERLAIN [Concomitant]
     Indication: DRUG USE FOR UNKNOWN INDICATION
     Dates: start: 20080101
  5. TRAMADOL HCL [Concomitant]
     Indication: PAIN
     Dates: start: 20040101

REACTIONS (2)
  - PAIN [None]
  - SPINAL DISORDER [None]
